FAERS Safety Report 11071339 (Version 1)
Quarter: 2015Q2

REPORT INFORMATION
  Report Type: Spontaneous
  Country: US (occurrence: None)
  Receive Date: 20150427
  Receipt Date: 20150427
  Transmission Date: 20150821
  Serious: No
  Sender: FDA-Public Use
  Company Number: None

PATIENT
  Age: 44 Year
  Sex: Female
  Weight: 58.06 kg

DRUGS (2)
  1. ESCITALOPRAM [Suspect]
     Active Substance: ESCITALOPRAM OXALATE
     Indication: ANXIETY
     Dosage: 1 PILL, ONCE DAILY, TAKEN BY MOUTH
     Route: 048
     Dates: start: 20150114, end: 20150406
  2. MULTIVITAMIN FOR WOMEN [Concomitant]

REACTIONS (9)
  - Irritability [None]
  - Nausea [None]
  - Insomnia [None]
  - Abnormal dreams [None]
  - Headache [None]
  - Poor quality sleep [None]
  - Product substitution issue [None]
  - Migraine [None]
  - Dizziness [None]
